FAERS Safety Report 24327431 (Version 3)
Quarter: 2024Q4

REPORT INFORMATION
  Report Type: Report from Study
  Country: NL (occurrence: NL)
  Receive Date: 20240917
  Receipt Date: 20241015
  Transmission Date: 20250115
  Serious: Yes (Hospitalization, Other)
  Sender: ABBVIE
  Company Number: NL-ABBVIE-5730470

PATIENT
  Sex: Female

DRUGS (24)
  1. CARBIDOPA\LEVODOPA [Suspect]
     Active Substance: CARBIDOPA\LEVODOPA
     Indication: Parkinson^s disease
     Dosage: MD:13.0 ML, CD: 3.2ML/H, ED:2.50ML DURATION TEXT: REMAINS AT 16 HOURS
     Route: 050
     Dates: start: 20240415, end: 20240606
  2. CARBIDOPA\LEVODOPA [Suspect]
     Active Substance: CARBIDOPA\LEVODOPA
     Dosage: MD:11.0 ML, CD: 2.6ML/H, ED:2.0ML, DURATION TEXT: REMAINS AT 16 HOURS
     Route: 050
     Dates: start: 20240226, end: 20240320
  3. CARBIDOPA\LEVODOPA [Suspect]
     Active Substance: CARBIDOPA\LEVODOPA
     Dosage: REMAINS AT 16 HOURS
     Route: 050
  4. CARBIDOPA\LEVODOPA [Suspect]
     Active Substance: CARBIDOPA\LEVODOPA
     Dosage: CD: 4.1ML/H, REMAINS AT 16 HOURS
     Route: 050
     Dates: start: 20240829, end: 20240911
  5. CARBIDOPA\LEVODOPA [Suspect]
     Active Substance: CARBIDOPA\LEVODOPA
     Dosage: MD: 11.0ML, CD:4.1ML/H, ED: 3.0ML, CND: 2.0ML/H, END: 3.0ML
     Route: 050
     Dates: start: 20241007
  6. CARBIDOPA\LEVODOPA [Suspect]
     Active Substance: CARBIDOPA\LEVODOPA
     Dosage: MD: 0.0ML, CND: 2.0ML/H, END: 3.50ML, DISCONTINUED IN SEP 2024
     Route: 050
     Dates: start: 20240911
  7. CARBIDOPA\LEVODOPA [Suspect]
     Active Substance: CARBIDOPA\LEVODOPA
     Dosage: MD: 11.0ML, CD:4.1ML/H, ED: 3.0ML, CND: 2.0ML/H, END: 3.0ML
     Route: 050
     Dates: start: 20240911, end: 20241007
  8. CARBIDOPA\LEVODOPA [Suspect]
     Active Substance: CARBIDOPA\LEVODOPA
     Dosage: MD: 13.0ML, CD: 2.9ML/H, ED: 2.50ML; DURATION TEXT: REMAINS AT 16 HOURS
     Route: 050
     Dates: start: 20240606, end: 20240616
  9. CARBIDOPA\LEVODOPA [Suspect]
     Active Substance: CARBIDOPA\LEVODOPA
     Dosage: LAST ADMIN DATE-02-2024
     Route: 050
     Dates: start: 20240219
  10. CARBIDOPA\LEVODOPA [Suspect]
     Active Substance: CARBIDOPA\LEVODOPA
     Dosage: MD:8.0 ML, CD: 2.0ML/H, ED:1.0ML, DURATION TEXT: REMAINS AT 16 HOURS
     Route: 050
     Dates: start: 20240220, end: 20240226
  11. CARBIDOPA\LEVODOPA [Suspect]
     Active Substance: CARBIDOPA\LEVODOPA
     Dosage: MD: 13.0ML, CD: 3.9ML/H, ED: 3.50ML, REMAINS AT 16 HOURS
     Route: 050
     Dates: start: 20240806, end: 20240829
  12. CARBIDOPA\LEVODOPA [Suspect]
     Active Substance: CARBIDOPA\LEVODOPA
     Dosage: MD:13.0 ML, CD: 2.9ML/H, ED:2.50ML, DURATION TEXT: REMAINS AT 16 HOURS
     Route: 050
     Dates: start: 20240320, end: 20240415
  13. CARBIDOPA\LEVODOPA [Suspect]
     Active Substance: CARBIDOPA\LEVODOPA
     Dosage: MD: 13.0ML, CD: 3.9ML/H, ED: 3.50ML; DURATION TEXT: REMAINS AT 16 HOURS
     Route: 050
     Dates: start: 20240616, end: 20240806
  14. CALCIUM\CHOLECALCIFEROL [Concomitant]
     Active Substance: CALCIUM\CHOLECALCIFEROL
     Indication: Osteoporosis
  15. CLOPIDOGREL [Concomitant]
     Active Substance: CLOPIDOGREL BISULFATE
     Indication: Anticoagulant therapy
     Route: 065
  16. CLOMIPRAMINE HYDROCHLORIDE [Concomitant]
     Active Substance: CLOMIPRAMINE HYDROCHLORIDE
     Indication: Panic reaction
     Dosage: RETARD
     Route: 065
  17. ASPIRIN [Concomitant]
     Active Substance: ASPIRIN
     Indication: Anticoagulant therapy
     Dosage: FREQUENCY TEXT: 1 TABLET ONCE A DAY
  18. METFORMIN [Concomitant]
     Active Substance: METFORMIN HYDROCHLORIDE
     Indication: Diabetes mellitus
  19. POLYETHYLENE GLYCOLS [Concomitant]
     Active Substance: POLYETHYLENE GLYCOLS
     Indication: Gastrointestinal motility disorder
     Route: 065
  20. CARBIDOPA\LEVODOPA [Concomitant]
     Active Substance: CARBIDOPA\LEVODOPA
     Indication: Parkinson^s disease
     Dosage: FREQUENCY TEXT: WHEN DISCONNECTING PUMP
     Route: 065
  21. CARBIDOPA\LEVODOPA [Concomitant]
     Active Substance: CARBIDOPA\LEVODOPA
     Indication: Parkinson^s disease
     Dosage: FREQUENCY TEXT: WHEN DISCONNECTING PUMP
     Route: 065
  22. SIMVASTATIN [Concomitant]
     Active Substance: SIMVASTATIN
     Indication: Blood cholesterol
  23. PANTOPRAZOLE [Concomitant]
     Active Substance: PANTOPRAZOLE
     Indication: Gastrointestinal disorder prophylaxis
  24. ROPINIROLE [Concomitant]
     Active Substance: ROPINIROLE
     Indication: Product used for unknown indication
     Dosage: AT 7AM IN THE MORNING, WILL BE CHANGED?DOSE DECREASED

REACTIONS (42)
  - Loss of consciousness [Recovering/Resolving]
  - Infection [Not Recovered/Not Resolved]
  - Haematuria [Not Recovered/Not Resolved]
  - Stoma complication [Not Recovered/Not Resolved]
  - Stoma site irritation [Not Recovered/Not Resolved]
  - Stress [Not Recovered/Not Resolved]
  - Feeling abnormal [Not Recovered/Not Resolved]
  - Middle insomnia [Not Recovered/Not Resolved]
  - Mobility decreased [Recovered/Resolved]
  - Muscle rigidity [Not Recovered/Not Resolved]
  - On and off phenomenon [Not Recovered/Not Resolved]
  - Tension [Not Recovered/Not Resolved]
  - Device issue [Recovered/Resolved]
  - Stoma site pain [Unknown]
  - Anxiety [Not Recovered/Not Resolved]
  - Hypotension [Not Recovered/Not Resolved]
  - Freezing phenomenon [Not Recovered/Not Resolved]
  - Therapeutic product effect incomplete [Not Recovered/Not Resolved]
  - Stoma site discharge [Not Recovered/Not Resolved]
  - Terminal insomnia [Not Recovered/Not Resolved]
  - Stoma site erythema [Not Recovered/Not Resolved]
  - Fatigue [Not Recovered/Not Resolved]
  - Syncope [Unknown]
  - Therapeutic response shortened [Not Recovered/Not Resolved]
  - Panic reaction [Not Recovered/Not Resolved]
  - Pallor [Not Recovered/Not Resolved]
  - Vomiting [Not Recovered/Not Resolved]
  - Dizziness [Recovering/Resolving]
  - Viral infection [Not Recovered/Not Resolved]
  - Tremor [Not Recovered/Not Resolved]
  - Unevaluable event [Not Recovered/Not Resolved]
  - Feeding disorder [Not Recovered/Not Resolved]
  - Muscle spasms [Not Recovered/Not Resolved]
  - Mobility decreased [Not Recovered/Not Resolved]
  - Dyskinesia [Not Recovered/Not Resolved]
  - Stoma site reaction [Not Recovered/Not Resolved]
  - Incorrect product administration duration [Not Recovered/Not Resolved]
  - Illness [Recovering/Resolving]
  - Drug ineffective [Not Recovered/Not Resolved]
  - Restlessness [Not Recovered/Not Resolved]
  - Device issue [Not Recovered/Not Resolved]
  - Reduced facial expression [Not Recovered/Not Resolved]

NARRATIVE: CASE EVENT DATE: 20240101
